FAERS Safety Report 9219167 (Version 7)
Quarter: 2014Q1

REPORT INFORMATION
  Report Type: Spontaneous
  Country: US (occurrence: None)
  Receive Date: 20130404
  Receipt Date: 20140206
  Transmission Date: 20141002
  Serious: Yes (Hospitalization)
  Sender: FDA-Public Use
  Company Number: AUR-APL-2013-02745

PATIENT
  Age: 68 Year
  Sex: Female
  Weight: 82.54 kg

DRUGS (4)
  1. LISINOPRIL [Suspect]
     Indication: HYPERTENSION
     Route: 048
     Dates: start: 20101210, end: 20130318
  2. CELECOXIB, IBUPROFEN, NAPROXEN, PLACEBO [Suspect]
     Indication: OSTEOARTHRITIS
     Route: 048
     Dates: start: 20100414, end: 20100824
  3. CELECOXIB, IBUPROFEN, NAPROXEN, PLACEBO [Suspect]
     Indication: RHEUMATOID ARTHRITIS
     Route: 048
     Dates: start: 20100414, end: 20100824
  4. NEXIUM (ESOMEPRAZOLE MAGNESIUM) [Concomitant]

REACTIONS (7)
  - Angioedema [None]
  - Acute respiratory failure [None]
  - Myocardial infarction [None]
  - Cerebrovascular accident [None]
  - Candida infection [None]
  - Urinary tract infection [None]
  - Device occlusion [None]
